FAERS Safety Report 7054203-0 (Version None)
Quarter: 2010Q4

REPORT INFORMATION
  Report Type: 
  Country: None (occurrence: None)
  Receive Date: 20101014
  Receipt Date: 20100930
  Transmission Date: 20110411
  Serious: Yes (Hospitalization)
  Sender: FDA-Public Use
  Company Number: DAV-AE-FUR-10-001

PATIENT
  Age: 62 Year
  Sex: Male

DRUGS (3)
  1. FUROSEMIDE [Suspect]
     Indication: GRANULOMATOUS LIVER DISEASE
  2. ALLOPURINOL [Concomitant]
  3. CORTICOSTEROID [Concomitant]

REACTIONS (4)
  - CONDITION AGGRAVATED [None]
  - DECREASED APPETITE [None]
  - HYPERCALCAEMIA [None]
  - WEIGHT DECREASED [None]
